FAERS Safety Report 6203020-X (Version None)
Quarter: 2009Q2

REPORT INFORMATION
  Report Type: 
  Country: None (occurrence: None)
  Receive Date: 20090527
  Receipt Date: 20090522
  Transmission Date: 20091009
  Serious: Yes (Other)
  Sender: FDA-Public Use
  Company Number: JP-SP-2009-02231

PATIENT
  Age: 60 Year
  Sex: Female

DRUGS (1)
  1. IMMUCYST [Suspect]
     Indication: URINARY TRACT CARCINOMA IN SITU
     Route: 050

REACTIONS (4)
  - BACK PAIN [None]
  - NAUSEA [None]
  - OFF LABEL USE [None]
  - PYREXIA [None]
